FAERS Safety Report 7347610-X (Version None)
Quarter: 2011Q1

REPORT INFORMATION
  Report Type: 
  Country: None (occurrence: None)
  Receive Date: 20110311
  Receipt Date: 20110301
  Transmission Date: 20110831
  Serious: Yes (Hospitalization)
  Sender: FDA-Public Use
  Company Number: BG-ABBOTT-09P-022-0606950-00

PATIENT
  Sex: Male
  Weight: 66 kg

DRUGS (11)
  1. AGAPURIN [Concomitant]
     Indication: VASODILATATION
     Route: 048
     Dates: start: 20080508
  2. CHLIPHASOLIN [Concomitant]
     Indication: HYPERTENSION
     Dates: start: 20070424
  3. ENPRIL [Concomitant]
     Indication: HYPERTENSION
     Route: 048
     Dates: start: 20080206
  4. MICARDIS [Concomitant]
     Indication: HYPERTENSION
     Route: 048
     Dates: start: 20061222
  5. INSULATARD PENFIL [Concomitant]
     Indication: TYPE 2 DIABETES MELLITUS
     Route: 058
     Dates: start: 20080827
  6. TRILIPIX [Suspect]
     Indication: MACULAR OEDEMA
     Route: 048
     Dates: start: 20090402, end: 20091016
  7. METIZOL [Concomitant]
     Indication: HYPERTHYROIDISM
     Dates: start: 20080304
  8. RAWEL [Concomitant]
     Indication: CARDIAC FAILURE
     Dates: start: 20091113
  9. FURANTRIL [Concomitant]
     Indication: CARDIAC FAILURE
     Dates: start: 20091113
  10. KARDIKET [Concomitant]
     Indication: CARDIAC FAILURE
     Dates: start: 20091113
  11. LODOZ [Concomitant]
     Indication: HYPERTENSION
     Dates: start: 20080304

REACTIONS (3)
  - RENAL DISORDER [None]
  - BLOOD CREATINE PHOSPHOKINASE INCREASED [None]
  - CARDIAC FAILURE CONGESTIVE [None]
